FAERS Safety Report 12173178 (Version 1)
Quarter: 2016Q1

REPORT INFORMATION
  Report Type: Spontaneous
  Country: US (occurrence: US)
  Receive Date: 20160311
  Receipt Date: 20160311
  Transmission Date: 20160526
  Serious: Yes (Death, Hospitalization, Other)
  Sender: FDA-Public Use
  Company Number: US-PFIZER INC-2016145512

PATIENT
  Age: 39 Year
  Sex: Female

DRUGS (2)
  1. CHLORAMPHENICOL [Suspect]
     Active Substance: CHLORAMPHENICOL
     Indication: BRONCHIECTASIS
     Dosage: 1 G, 2X/WEEK
     Dates: start: 19500818, end: 19510224
  2. POTASSIUM IODIDE [Concomitant]
     Active Substance: POTASSIUM IODIDE
     Dosage: UNK

REACTIONS (2)
  - Pancytopenia [Fatal]
  - Bone marrow failure [Fatal]
